FAERS Safety Report 7572535-4 (Version None)
Quarter: 2011Q2

REPORT INFORMATION
  Report Type: 
  Country: None (occurrence: None)
  Receive Date: 20110627
  Receipt Date: 20110617
  Transmission Date: 20111010
  Serious: Yes (Hospitalization)
  Sender: FDA-Public Use
  Company Number: US-BIOGENIDEC-2010BI044913

PATIENT
  Age: 66 Year
  Sex: Female

DRUGS (3)
  1. AVONEX [Suspect]
     Indication: MULTIPLE SCLEROSIS
     Route: 030
     Dates: start: 20101001
  2. AVONEX [Suspect]
     Route: 030
     Dates: start: 20030901
  3. AVONEX [Suspect]
     Route: 030
     Dates: start: 19990201, end: 20030801

REACTIONS (6)
  - SMALL INTESTINAL OBSTRUCTION [None]
  - STREPTOCOCCAL BACTERAEMIA [None]
  - IMPAIRED HEALING [None]
  - INCISION SITE INFECTION [None]
  - BACTERIAL DISEASE CARRIER [None]
  - VIRAL INFECTION [None]
